FAERS Safety Report 10178039 (Version 1)
Quarter: 2014Q2

REPORT INFORMATION
  Report Type: Report from Study
  Country: US (occurrence: US)
  Receive Date: 20140518
  Receipt Date: 20140518
  Transmission Date: 20141212
  Serious: Yes (Other)
  Sender: FDA-Public Use
  Company Number: US-ABBVIE-14P-163-1235530-00

PATIENT
  Age: 64 Year
  Sex: Female
  Weight: 113.5 kg

DRUGS (11)
  1. HUMIRA [Suspect]
     Indication: RHEUMATOID ARTHRITIS
  2. HUMIRA [Suspect]
     Indication: RHEUMATOID ARTHRITIS
  3. PLAQUENIL [Suspect]
     Indication: RHEUMATOID ARTHRITIS
     Dates: start: 2002, end: 201404
  4. METHOTREXATE [Concomitant]
     Indication: RHEUMATOID ARTHRITIS
  5. BENICAR [Concomitant]
     Indication: HYPERTENSION
  6. FOLATE [Concomitant]
     Indication: VITAMIN SUPPLEMENTATION
  7. VITAMIN C [Concomitant]
     Indication: VITAMIN SUPPLEMENTATION
  8. FISH OIL [Concomitant]
     Indication: PRODUCT USED FOR UNKNOWN INDICATION
  9. ALIVE MULTIVITAMIN [Concomitant]
     Indication: VITAMIN SUPPLEMENTATION
  10. PREMARIN [Concomitant]
     Indication: HORMONE REPLACEMENT THERAPY
  11. NORVASC [Concomitant]
     Indication: PRODUCT USED FOR UNKNOWN INDICATION

REACTIONS (1)
  - Ocular toxicity [Recovered/Resolved]
